FAERS Safety Report 5574806-X (Version None)
Quarter: 2007Q4

REPORT INFORMATION
  Report Type: 
  Country: None (occurrence: None)
  Receive Date: 20071226
  Receipt Date: 20071226
  Transmission Date: 20080405
  Serious: Yes (Hospitalization)
  Sender: FDA-Public Use
  Company Number: None

PATIENT
  Age: 71 Year
  Sex: Male

DRUGS (2)
  1. FLUDARABINE [Suspect]
     Indication: WALDENSTROM'S MACROGLOBULINAEMIA
     Dosage: 58MG UD IV
     Route: 042
     Dates: start: 20070808
  2. RITUXIMAB [Suspect]
     Dosage: 870MG UD IV
     Route: 042
     Dates: start: 20070808

REACTIONS (2)
  - CONTUSION [None]
  - THROMBOCYTOPENIA [None]
